FAERS Safety Report 22103826 (Version 1)
Quarter: 2023Q1

REPORT INFORMATION
  Report Type: Spontaneous
  Country: PL (occurrence: PL)
  Receive Date: 20230316
  Receipt Date: 20230316
  Transmission Date: 20230417
  Serious: Yes (Other)
  Sender: FDA-Public Use
  Company Number: PL-CHEPLA-2023001945

PATIENT
  Age: 64 Year
  Sex: Female

DRUGS (7)
  1. OMEPRAZOLE [Interacting]
     Active Substance: OMEPRAZOLE
     Indication: Atrial fibrillation
  2. PROPAFENONE [Interacting]
     Active Substance: PROPAFENONE
     Indication: Atrial fibrillation
  3. ZOLPIDEM [Concomitant]
     Active Substance: ZOLPIDEM TARTRATE
     Dosage: 30 MINUTES BEFORE BEDTIME
  4. PAROXETINE [Interacting]
     Active Substance: PAROXETINE
     Indication: Depression
  5. DOXYLAMINE [Interacting]
     Active Substance: DOXYLAMINE
     Indication: Depression
     Dosage: 30 MINUTES BEFORE SCHEDULED BEDTIME
  6. RIVAROXABAN [Concomitant]
     Active Substance: RIVAROXABAN
     Indication: Atrial fibrillation
     Dosage: 20 MILLIGRAM
  7. METOPROLOL [Concomitant]
     Active Substance: METOPROLOL
     Indication: Atrial fibrillation

REACTIONS (3)
  - Drug interaction [Unknown]
  - Rhabdomyolysis [Unknown]
  - Sleep disorder [Unknown]
